FAERS Safety Report 4772311-1 (Version None)
Quarter: 2005Q3

REPORT INFORMATION
  Report Type: 
  Country: None (occurrence: None)
  Receive Date: 20050919
  Receipt Date: 20050713
  Transmission Date: 20060218
  Serious: No
  Sender: FDA-Public Use
  Company Number: US-BRISTOL-MYERS SQUIBB COMPANY-13041330

PATIENT
  Age: 66 Year
  Sex: Male
  Weight: 78 kg

DRUGS (7)
  1. DEFINITY [Suspect]
     Indication: ECHOCARDIOGRAM
     Route: 040
     Dates: start: 20050713, end: 20050713
  2. OMEPRAZOLE [Concomitant]
  3. ETODOLAC [Concomitant]
  4. OXYMETAZOLINE [Concomitant]
  5. SIMVASTATIN [Concomitant]
  6. TIZANIDINE HCL [Concomitant]
  7. SILDENAFIL [Concomitant]

REACTIONS (2)
  - PRURITUS [None]
  - URTICARIA [None]
